FAERS Safety Report 5452122-4 (Version None)
Quarter: 2007Q3

REPORT INFORMATION
  Report Type: 
  Country: None (occurrence: None)
  Receive Date: 20070912
  Receipt Date: 20070308
  Transmission Date: 20080115
  Serious: Yes (Other)
  Sender: FDA-Public Use
  Company Number: 2007VX000811

PATIENT
  Age: 58 Year
  Sex: Female
  Weight: 62.5964 kg

DRUGS (8)
  1. INFERGEN [Suspect]
     Indication: HEPATITIS C
     Dosage: 15 UG; 9 UG; QD; SC
     Route: 058
     Dates: end: 20061001
  2. INFERGEN [Suspect]
     Indication: HEPATITIS C
     Dosage: 15 UG; 9 UG; QD; SC
     Route: 058
     Dates: start: 20061016
  3. RIBAVIRIN [Concomitant]
  4. CELEXA [Concomitant]
  5. TRAZODONE HCL [Concomitant]
  6. XANAX [Concomitant]
  7. LEVOXYL [Concomitant]
  8. ARANESP [Concomitant]

REACTIONS (14)
  - ALOPECIA [None]
  - ANOREXIA [None]
  - ASTHENIA [None]
  - BLOOD GLUCOSE DECREASED [None]
  - CHEST PAIN [None]
  - DIZZINESS [None]
  - DRUG INTOLERANCE [None]
  - DRY MOUTH [None]
  - DYSPNOEA [None]
  - FATIGUE [None]
  - HAEMOGLOBIN DECREASED [None]
  - INFLUENZA LIKE ILLNESS [None]
  - INJECTION SITE ERYTHEMA [None]
  - WEIGHT DECREASED [None]
